FAERS Safety Report 6631035-6 (Version None)
Quarter: 2010Q1

REPORT INFORMATION
  Report Type: 
  Country: None (occurrence: None)
  Receive Date: 20100309
  Receipt Date: 20100225
  Transmission Date: 20100710
  Serious: Yes (Death)
  Sender: FDA-Public Use
  Company Number: KADN20100006

PATIENT
  Age: 35 Year
  Sex: Male

DRUGS (2)
  1. KADIAN [Suspect]
     Indication: PAIN
     Dosage: 20 MG, 2 IN 1 D, PER ORAL
     Route: 048
     Dates: start: 20091201, end: 20091226
  2. UNKNOWN PSYCHOTROPIC MEDICATIONS [Suspect]
     Indication: DRUG USE FOR UNKNOWN INDICATION
     Dates: end: 20091226

REACTIONS (1)
  - DEATH [None]
